FAERS Safety Report 18732310 (Version 1)
Quarter: 2021Q1

REPORT INFORMATION
  Report Type: Report from Study
  Country: FR (occurrence: FR)
  Receive Date: 20210112
  Receipt Date: 20210112
  Transmission Date: 20210419
  Serious: Yes (Other)
  Sender: FDA-Public Use
  Company Number: FR-US-PROVELL PHARMACEUTICALS LLC-9210467

PATIENT
  Sex: Female

DRUGS (3)
  1. LEVOTHYROX [Suspect]
     Active Substance: LEVOTHYROXINE
     Indication: PRODUCT USED FOR UNKNOWN INDICATION
  2. LEVOTHYROX [Suspect]
     Active Substance: LEVOTHYROXINE
     Dosage: DOSE INCREASED
     Dates: end: 201710
  3. LEVOTHYROX [Suspect]
     Active Substance: LEVOTHYROXINE
     Dosage: RE INTRODUCED

REACTIONS (24)
  - Blood thyroid stimulating hormone increased [Recovered/Resolved]
  - Pruritus [Unknown]
  - Intervertebral disc disorder [Not Recovered/Not Resolved]
  - Pain [Not Recovered/Not Resolved]
  - Arthralgia [Not Recovered/Not Resolved]
  - Muscle spasms [Unknown]
  - Palpitations [Recovered/Resolved]
  - Sciatica [Recovered/Resolved]
  - Visual impairment [Recovered/Resolved]
  - Headache [Recovering/Resolving]
  - Amnesia [Not Recovered/Not Resolved]
  - Uterine leiomyoma [Recovered/Resolved]
  - Dysstasia [Recovered/Resolved]
  - Limb discomfort [Unknown]
  - Tremor [Unknown]
  - Ear pain [Not Recovered/Not Resolved]
  - Myalgia [Not Recovered/Not Resolved]
  - Pain in extremity [Recovered/Resolved]
  - Feeling abnormal [Unknown]
  - Musculoskeletal stiffness [Recovered/Resolved]
  - Fatigue [Not Recovered/Not Resolved]
  - Sensory loss [Unknown]
  - Dyspnoea [Not Recovered/Not Resolved]
  - Nausea [Not Recovered/Not Resolved]

NARRATIVE: CASE EVENT DATE: 2011
